FAERS Safety Report 25686256 (Version 1)
Quarter: 2025Q3

REPORT INFORMATION
  Report Type: Spontaneous
  Country: US (occurrence: US)
  Receive Date: 20250815
  Receipt Date: 20250815
  Transmission Date: 20251020
  Serious: Yes (Hospitalization)
  Sender: NOVO NORDISK
  Company Number: US-NOVOPROD-1499295

PATIENT
  Age: 17 Year
  Sex: Female

DRUGS (1)
  1. OZEMPIC [Suspect]
     Active Substance: SEMAGLUTIDE
     Indication: Polycystic ovarian syndrome
     Dosage: 2 MG, QW
     Route: 058
     Dates: start: 202301

REACTIONS (4)
  - Knee operation [Not Recovered/Not Resolved]
  - Blood testosterone increased [Recovering/Resolving]
  - Blood insulin increased [Recovering/Resolving]
  - Product use in unapproved indication [Unknown]

NARRATIVE: CASE EVENT DATE: 20241001
